FAERS Safety Report 9245524 (Version 1)
Quarter: 2013Q2

REPORT INFORMATION
  Report Type: Spontaneous
  Country: US (occurrence: US)
  Receive Date: 20130422
  Receipt Date: 20130422
  Transmission Date: 20140414
  Serious: No
  Sender: FDA-Public Use
  Company Number: US-PFIZER INC-2013125419

PATIENT
  Age: 59 Year
  Sex: Female

DRUGS (2)
  1. EFFEXOR XR [Suspect]
     Indication: DEPRESSION
     Dosage: UNK
  2. EFFEXOR XR [Suspect]
     Indication: ANXIETY
     Dosage: 2 CAPSULES OF 75 MG IN MORNING, ONE CAPSULE OF 75 MG AT NOON AND ONE CAPSULE OF 75 MG IN AFTERNOON
     Dates: start: 2013

REACTIONS (1)
  - Insomnia [Unknown]
